FAERS Safety Report 8790905 (Version 2)
Quarter: 2012Q4

REPORT INFORMATION
  Report Type: Spontaneous
  Country: JP (occurrence: None)
  Receive Date: 20120910
  Receipt Date: 20120928
  Transmission Date: 20130627
  Serious: Yes (Life-Threatening, Other)
  Sender: FDA-Public Use
  Company Number: JP-2012-16177

PATIENT
  Age: 71 Year
  Sex: Male
  Weight: 58 kg

DRUGS (13)
  1. SAMSCA (TOLVAPTAN) TABLET [Suspect]
     Indication: FLUID RETENTION
     Route: 048
     Dates: start: 20120822, end: 20120824
  2. LASIX (FUROSEMIDE) [Concomitant]
     Indication: CARDIAC FAILURE
     Dosage: 5 ug/kg/min, daily dose, intravenous
  3. PREDOPA (DOPAMINE HYDROCHLORIDE) [Concomitant]
     Indication: CARDIAC FAILURE
     Dosage: 5 ug/kg/min, daily dose, Intravenous
  4. NOVO HEPARIN (HEPARIN) [Concomitant]
     Indication: CARDIAC FAILURE
  5. SLOW K (POTASSIUM CHLORIDE) [Concomitant]
  6. MAGMITT (MAGNESIUM OXIDE) [Concomitant]
  7. DOPMIN-K (DOBUTAMINE HYDROCHLORIDE) [Concomitant]
  8. NOVORAPID 30 MIX (INSULIN ASPART(GENETICAL RECOMBINATION) [Concomitant]
  9. PARIET (RABEPRAZOLE SODIUM) [Concomitant]
  10. FLUITRAN (TRICHLORMETHIAZIDE) [Concomitant]
  11. PIMOBENDAN (PIMOBENDAN) [Concomitant]
  12. LENDORMIN D [Concomitant]
  13. LECTISOL (DAPSONE) [Concomitant]

REACTIONS (4)
  - Platelet count decreased [None]
  - Ventricular fibrillation [None]
  - Cardio-respiratory arrest [None]
  - Ventricular fibrillation [None]
